FAERS Safety Report 6229020-1 (Version None)
Quarter: 2009Q2

REPORT INFORMATION
  Report Type: 
  Country: None (occurrence: None)
  Receive Date: 20090615
  Receipt Date: 20090610
  Transmission Date: 20091009
  Serious: Yes (Hospitalization)
  Sender: FDA-Public Use
  Company Number: US-BIOGENIDEC-2005BI006156

PATIENT
  Age: 54 Year
  Sex: Male
  Weight: 113 kg

DRUGS (2)
  1. AVONEX [Suspect]
     Indication: MULTIPLE SCLEROSIS
     Route: 030
     Dates: start: 19960101, end: 20030101
  2. AVONEX [Suspect]
     Route: 030
     Dates: start: 20030101

REACTIONS (7)
  - ANKLE FRACTURE [None]
  - MUSCLE SPASMS [None]
  - OEDEMA PERIPHERAL [None]
  - PANCREATIC DISORDER [None]
  - PERIPHERAL ARTERIAL OCCLUSIVE DISEASE [None]
  - TEMPERATURE INTOLERANCE [None]
  - THROMBOSIS [None]
